FAERS Safety Report 6051308-8 (Version None)
Quarter: 2009Q1

REPORT INFORMATION
  Report Type: 
  Country: None (occurrence: None)
  Receive Date: 20090121
  Receipt Date: 20090105
  Transmission Date: 20090719
  Serious: Yes (Death, Hospitalization, Other)
  Sender: FDA-Public Use
  Company Number: 2009000014

PATIENT
  Age: 71 Year
  Sex: Female

DRUGS (9)
  1. ERLOTINIB               (ERLOTINIB) [Suspect]
     Indication: LUNG SQUAMOUS CELL CARCINOMA STAGE UNSPECIFIED
     Dosage: (150 MG, QD), ORAL
     Route: 048
     Dates: start: 20080324, end: 20080414
  2. ADONA (CARBAZOCHROME SODIUM SULFONATE) [Concomitant]
  3. TRANSAMIN (TRANEXAMIC ACID) [Concomitant]
  4. LOXONIN (LOXOPROFEN SODIUM) [Concomitant]
  5. MUCOSTA (REBAMIPIDE) [Concomitant]
  6. FAMOTIDINE [Concomitant]
  7. PREDNISOLONE [Concomitant]
  8. HOKUNALIN (TULOBUTEROL HYDROCHLORIDE) [Concomitant]
  9. DUROTEP [Concomitant]

REACTIONS (4)
  - DISEASE PROGRESSION [None]
  - LUNG SQUAMOUS CELL CARCINOMA STAGE UNSPECIFIED [None]
  - PLATELET COUNT DECREASED [None]
  - REACTION TO DRUG EXCIPIENTS [None]
